FAERS Safety Report 10518315 (Version 1)
Quarter: 2014Q4

REPORT INFORMATION
  Report Type: Spontaneous
  Country: US (occurrence: None)
  Receive Date: 20141014
  Receipt Date: 20141014
  Transmission Date: 20150528
  Serious: Yes (Hospitalization)
  Sender: FDA-Public Use
  Company Number: None

PATIENT
  Age: 74 Year
  Sex: Female

DRUGS (1)
  1. CAPECITABINE. [Suspect]
     Active Substance: CAPECITABINE
     Indication: COLON CANCER
     Dosage: 2000 MG BID FOR 14 DAYS THEN 7
     Route: 048
     Dates: start: 20140718, end: 20140828

REACTIONS (7)
  - Pulse absent [None]
  - Dehydration [None]
  - Decreased appetite [None]
  - Eating disorder [None]
  - Respiratory arrest [None]
  - Vomiting [None]
  - Nausea [None]
